FAERS Safety Report 8619223-0 (Version None)
Quarter: 2012Q3

REPORT INFORMATION
  Report Type: 
  Country: None (occurrence: None)
  Receive Date: 20120824
  Receipt Date: 20120817
  Transmission Date: 20120928
  Serious: Yes (Hospitalization, Disabling, Other)
  Sender: FDA-Public Use
  Company Number: US-009507513-1205USA04582

PATIENT

DRUGS (8)
  1. FOSAMAX [Suspect]
     Indication: OSTEOPOROSIS PROPHYLAXIS
     Dosage: UNK
     Route: 048
     Dates: start: 19980326, end: 20100727
  2. FOSAMAX [Suspect]
     Indication: OSTEOPOROSIS
     Dosage: 10 MG, QD
     Route: 048
     Dates: start: 19990804, end: 20030418
  3. ALENDRONATE SODIUM [Suspect]
     Indication: OSTEOPOROSIS PROPHYLAXIS
     Dosage: UNK
     Route: 048
     Dates: start: 20080224, end: 20101011
  4. LOPID [Concomitant]
     Dosage: 600 MG, BID
  5. FOSAMAX [Suspect]
     Dosage: 70 MG, QW
     Route: 048
     Dates: start: 20030422, end: 20100727
  6. ALLEGRA [Concomitant]
  7. RANITIDINE [Concomitant]
  8. PENLAC [Concomitant]

REACTIONS (26)
  - HYPERKERATOSIS [None]
  - DEVICE DISLOCATION [None]
  - ACTINIC KERATOSIS [None]
  - DEAFNESS [None]
  - TOOTH EXTRACTION [None]
  - VITAMIN D DEFICIENCY [None]
  - GLUCOSE TOLERANCE IMPAIRED [None]
  - STRESS FRACTURE [None]
  - BREAST CANCER [None]
  - CHOLECYSTITIS CHRONIC [None]
  - ABDOMINAL HERNIA [None]
  - CHRONIC OBSTRUCTIVE PULMONARY DISEASE [None]
  - AORTIC ARTERIOSCLEROSIS [None]
  - OSTEOPOROSIS [None]
  - KNEE ARTHROPLASTY [None]
  - SHOULDER ARTHROPLASTY [None]
  - MASS [None]
  - PERITONSILLAR ABSCESS [None]
  - ROTATOR CUFF SYNDROME [None]
  - ATELECTASIS [None]
  - GASTROOESOPHAGEAL REFLUX DISEASE [None]
  - FEMUR FRACTURE [None]
  - LOW TURNOVER OSTEOPATHY [None]
  - ADVERSE EVENT [None]
  - INFLUENZA [None]
  - CONSTIPATION [None]
